FAERS Safety Report 22182712 (Version 1)
Quarter: 2023Q2

REPORT INFORMATION
  Report Type: Spontaneous
  Country: US (occurrence: None)
  Receive Date: 20230406
  Receipt Date: 20230406
  Transmission Date: 20230721
  Serious: Yes (Hospitalization)
  Sender: FDA-Public Use
  Company Number: None

PATIENT
  Age: 70 Year
  Sex: Female
  Weight: 63.09 kg

DRUGS (12)
  1. CAPECITABINE [Suspect]
     Active Substance: CAPECITABINE
     Indication: Breast cancer female
     Dosage: FREQUENCY : TWICE A DAY;?
     Route: 048
     Dates: end: 202303
  2. CHLORTHALIDONE [Concomitant]
  3. DEXAMETHASONE [Concomitant]
     Active Substance: DEXAMETHASONE
  4. DILTIAZEM [Concomitant]
  5. ATROPINE\DIPHENOXYLATE [Concomitant]
     Active Substance: ATROPINE\DIPHENOXYLATE
  6. FAMOTIDINE [Concomitant]
  7. NERLYNX [Concomitant]
     Active Substance: NERATINIB
  8. OXYCODONE [Concomitant]
     Active Substance: OXYCODONE
  9. CALCIUM [Concomitant]
  10. TRIMETHOBENZAMIDE [Concomitant]
     Active Substance: TRIMETHOBENZAMIDE
  11. TUKYSA [Concomitant]
     Active Substance: TUCATINIB
  12. VITAMIN D3 [Concomitant]
     Active Substance: CHOLECALCIFEROL

REACTIONS (1)
  - Pulmonary oedema [None]
